FAERS Safety Report 5612509-3 (Version None)
Quarter: 2008Q1

REPORT INFORMATION
  Report Type: 
  Country: None (occurrence: None)
  Receive Date: 20080204
  Receipt Date: 20080130
  Transmission Date: 20080703
  Serious: Yes (Hospitalization)
  Sender: FDA-Public Use
  Company Number: AU-BRISTOL-MYERS SQUIBB COMPANY-14023881

PATIENT
  Age: 40 Year
  Sex: Female

DRUGS (2)
  1. ABATACEPT [Suspect]
     Indication: SYSTEMIC LUPUS ERYTHEMATOSUS
     Dosage: INTRUPTED ON 15-NOV-2007
     Route: 042
     Dates: start: 20060316
  2. ASPIRIN [Concomitant]
     Dates: start: 20010205

REACTIONS (12)
  - ABDOMINAL PAIN [None]
  - BALANCE DISORDER [None]
  - HEADACHE [None]
  - HYPERHIDROSIS [None]
  - HYPERREFLEXIA [None]
  - LUPUS ENCEPHALITIS [None]
  - NAUSEA [None]
  - NYSTAGMUS [None]
  - ORAL HERPES [None]
  - PYREXIA [None]
  - SYSTEMIC LUPUS ERYTHEMATOSUS [None]
  - VOMITING [None]
